FAERS Safety Report 13835051 (Version 1)
Quarter: 2017Q3

REPORT INFORMATION
  Report Type: Spontaneous
  Country: US (occurrence: US)
  Receive Date: 20170804
  Receipt Date: 20170804
  Transmission Date: 20171127
  Serious: Yes (Hospitalization)
  Sender: FDA-Public Use
  Company Number: None

PATIENT
  Age: 52 Year
  Sex: Male
  Weight: 106.59 kg

DRUGS (10)
  1. CYTARABINE. [Suspect]
     Active Substance: CYTARABINE
     Dates: end: 20170728
  2. DAUNORUBICIN [Suspect]
     Active Substance: DAUNORUBICIN
     Dates: end: 20170710
  3. VINCRISTINE [Suspect]
     Active Substance: VINCRISTINE
     Dates: end: 20170710
  4. CYCLOPHOSPHAMIDE. [Suspect]
     Active Substance: CYCLOPHOSPHAMIDE
     Dates: end: 20170717
  5. MERCAPTOPURINE. [Suspect]
     Active Substance: MERCAPTOPURINE
     Dates: end: 20170730
  6. DEXAMETHASONE. [Suspect]
     Active Substance: DEXAMETHASONE
     Dates: end: 20170717
  7. HYDROCORTISONE. [Suspect]
     Active Substance: HYDROCORTISONE
     Dates: end: 20170519
  8. ONCASPAR [Suspect]
     Active Substance: PEGASPARGASE
     Dosage: 3750 UNIT
     Dates: end: 20170425
  9. ETOPOSIDE (VP-16) [Suspect]
     Active Substance: ETOPOSIDE
     Dates: end: 20170523
  10. METHOTREXATE. [Suspect]
     Active Substance: METHOTREXATE
     Dates: end: 20170519

REACTIONS (7)
  - Dyspnoea [None]
  - Sinus tachycardia [None]
  - Infusion related reaction [None]
  - Angioedema [None]
  - Urticaria [None]
  - Heart rate irregular [None]
  - Swelling face [None]

NARRATIVE: CASE EVENT DATE: 20170801
